FAERS Safety Report 4621614-X (Version None)
Quarter: 2005Q1

REPORT INFORMATION
  Report Type: 
  Country: None (occurrence: None)
  Receive Date: 20050328
  Receipt Date: 20050314
  Transmission Date: 20050727
  Serious: Yes (Other)
  Sender: FDA-Public Use
  Company Number: 2005033205

PATIENT
  Age: 74 Year
  Sex: Female
  Weight: 82.5547 kg

DRUGS (6)
  1. DETROL LA [Suspect]
     Indication: POLLAKIURIA
     Dosage: 4 MG (4 MG, 1 IN 1 D), ORAL
     Route: 048
     Dates: start: 20041101
  2. LEVOTHYROXINE SODIUM [Concomitant]
  3. TEGASEROD (TEGASEROD) [Concomitant]
  4. LACTULOSE [Concomitant]
  5. CELECOXIB (CELECOXIB) [Concomitant]
  6. VITAMINS (VITAMINS) [Concomitant]

REACTIONS (6)
  - ABASIA [None]
  - GASTROINTESTINAL DISORDER [None]
  - OEDEMA PERIPHERAL [None]
  - PAIN IN EXTREMITY [None]
  - TRANSIENT ISCHAEMIC ATTACK [None]
  - WEIGHT DECREASED [None]
